FAERS Safety Report 12400565 (Version 1)
Quarter: 2016Q2

REPORT INFORMATION
  Report Type: Spontaneous
  Country: US (occurrence: None)
  Receive Date: 20160524
  Receipt Date: 20160524
  Transmission Date: 20160815
  Serious: Yes (Disabling)
  Sender: FDA-Public Use
  Company Number: None

PATIENT
  Age: 67 Year
  Sex: Female
  Weight: 99.79 kg

DRUGS (11)
  1. CACLIUM + D [Concomitant]
  2. LANSOPRAZOLE DR (PREVACID) [Concomitant]
  3. FENOFIBRIC ACID (TRIPLIX) [Concomitant]
  4. VANLAFAXINE (EFFEX0R) [Concomitant]
  5. BIOTIN [Concomitant]
     Active Substance: BIOTIN
  6. CELEBREX [Concomitant]
     Active Substance: CELECOXIB
  7. PRAMIPEXOLE (ABILIFY ) [Concomitant]
  8. LANSOPRAZOLE 30MG DR, 30MG TEVA [Suspect]
     Active Substance: LANSOPRAZOLE
     Indication: GASTRIC ULCER
     Route: 048
     Dates: start: 20160321, end: 20160523
  9. BUROPION  HCL XL  (WELLBUTRIN) [Concomitant]
  10. VITAMIN D [Concomitant]
     Active Substance: CHOLECALCIFEROL
  11. CENTRUM SILVER MULTIVITAMIN [Concomitant]

REACTIONS (3)
  - Abdominal pain upper [None]
  - Product substitution issue [None]
  - Drug ineffective [None]

NARRATIVE: CASE EVENT DATE: 20160523
